FAERS Safety Report 21729689 (Version 1)
Quarter: 2022Q4

REPORT INFORMATION
  Report Type: Spontaneous
  Country: US (occurrence: US)
  Receive Date: 20221214
  Receipt Date: 20221214
  Transmission Date: 20230112
  Serious: No
  Sender: FDA-Public Use
  Company Number: US-PERRIGO-22US005118

PATIENT
  Age: 51 Year
  Sex: Female
  Weight: 104.31 kg

DRUGS (3)
  1. TIOCONAZOLE [Suspect]
     Active Substance: TIOCONAZOLE
     Indication: Vulvovaginal mycotic infection
     Dosage: 300 MG, SINGLE
     Route: 067
     Dates: start: 20220403, end: 20220403
  2. VALSARTAN [Concomitant]
     Active Substance: VALSARTAN
     Indication: Blood pressure abnormal
     Dosage: UNK
     Route: 065
     Dates: start: 2017
  3. AMOXICILLIN [Concomitant]
     Active Substance: AMOXICILLIN
     Indication: Sinusitis
     Dosage: UNK
     Route: 065
     Dates: start: 20220331

REACTIONS (6)
  - Hypersensitivity [Not Recovered/Not Resolved]
  - Vulvovaginal inflammation [Not Recovered/Not Resolved]
  - Vulvovaginal pruritus [Not Recovered/Not Resolved]
  - Vulvovaginal burning sensation [Not Recovered/Not Resolved]
  - Vulvovaginal erythema [Not Recovered/Not Resolved]
  - Vulvovaginal swelling [Not Recovered/Not Resolved]

NARRATIVE: CASE EVENT DATE: 20220403
